FAERS Safety Report 9922857 (Version 1)
Quarter: 2014Q1

REPORT INFORMATION
  Report Type: Spontaneous
  Country: US (occurrence: US)
  Receive Date: 20140225
  Receipt Date: 20140225
  Transmission Date: 20141002
  Serious: No
  Sender: FDA-Public Use
  Company Number: US-ABBVIE-13P-163-1171140-00

PATIENT
  Sex: Male
  Weight: 92.62 kg

DRUGS (4)
  1. ANDROGEL [Suspect]
     Indication: BLOOD TESTOSTERONE DECREASED
     Dates: start: 201309, end: 20131101
  2. ANDROGEL [Suspect]
     Dosage: DOSE DECREASED
  3. PRILOSEC [Concomitant]
     Indication: DYSPEPSIA
  4. CIALIS [Concomitant]
     Indication: PRODUCT USED FOR UNKNOWN INDICATION

REACTIONS (2)
  - Mood altered [Recovered/Resolved]
  - Drug ineffective [Unknown]
